FAERS Safety Report 9380170 (Version 1)
Quarter: 2013Q3

REPORT INFORMATION
  Report Type: Spontaneous
  Country: US (occurrence: None)
  Receive Date: 20130701
  Receipt Date: 20130701
  Transmission Date: 20140515
  Serious: Yes (Other)
  Sender: FDA-Public Use
  Company Number: None

PATIENT
  Age: 11 Year
  Sex: Male

DRUGS (4)
  1. NORDITROPIN [Suspect]
     Dosage: 0.5MG QD SQ
     Route: 058
     Dates: start: 20130529
  2. FLUTICASONE [Concomitant]
  3. VENTOLIN [Concomitant]
  4. QVAR [Concomitant]

REACTIONS (2)
  - Anger [None]
  - Depression [None]
